FAERS Safety Report 17005097 (Version 1)
Quarter: 2019Q4

REPORT INFORMATION
  Report Type: Spontaneous
  Country: IN (occurrence: US)
  Receive Date: 20191107
  Receipt Date: 20191107
  Transmission Date: 20200122
  Serious: Yes (Hospitalization, Other)
  Sender: FDA-Public Use
  Company Number: US-BAYER-2019-198538

PATIENT
  Age: 42 Year
  Sex: Male

DRUGS (1)
  1. PARACETAMOL [Suspect]
     Active Substance: ACETAMINOPHEN
     Dosage: 27 G, UNK
     Route: 048

REACTIONS (5)
  - Intentional overdose [Recovering/Resolving]
  - Haemolysis [Recovering/Resolving]
  - Liver injury [Recovered/Resolved]
  - Labelled drug-drug interaction medication error [None]
  - Renal injury [Recovered/Resolved]
